FAERS Safety Report 18316026 (Version 1)
Quarter: 2020Q3

REPORT INFORMATION
  Report Type: Spontaneous
  Country: FR (occurrence: FR)
  Receive Date: 20200927
  Receipt Date: 20200927
  Transmission Date: 20201103
  Serious: Yes (Life-Threatening)
  Sender: FDA-Public Use
  Company Number: FR-TEVA-2020-FR-1830972

PATIENT
  Age: 45 Year
  Sex: Male
  Weight: 70 kg

DRUGS (27)
  1. LANTUS SOLOSTAR 100 UNITES/ ML, SOLUTION INJECTABLE EN STYLO PREREMPLI [Concomitant]
     Indication: PRODUCT USED FOR UNKNOWN INDICATION
     Dosage: 30 IU (INTERNATIONAL UNIT) DAILY; EVENING
  2. NICOPATCH 14 MG/24 H, DISPOSITIF TRANSDERMIQUE DE 35 MG/20 CM [Concomitant]
     Indication: PRODUCT USED FOR UNKNOWN INDICATION
     Route: 003
  3. ZARZIO [Concomitant]
     Active Substance: FILGRASTIM
     Indication: PRODUCT USED FOR UNKNOWN INDICATION
     Dosage: 1 DOSAGE FORMS DAILY; 1 SYRINGE PER DAY SUBCUTANEOUSLY FOR 5 CONSECUTIVE DAYS WITHIN 48 HOURS OF THE
     Route: 058
  4. PARACETAMOL [Concomitant]
     Active Substance: ACETAMINOPHEN
     Indication: PAIN
     Dosage: 4 GRAM DAILY; FOR PAIN
     Route: 048
  5. NATISPRAY 0,30 MG/DOSE, SOLUTION POUR PULVERISATION BUCCALE [Concomitant]
     Active Substance: NITROGLYCERIN
     Indication: PRODUCT USED FOR UNKNOWN INDICATION
     Dosage: 1 SPRAY IF CHEST PAIN,1 DOSAGE FORM
  6. CISPLATINE [Suspect]
     Active Substance: CISPLATIN
     Indication: OESOPHAGEAL CARCINOMA RECURRENT
     Dosage: TCF PROTOCOL (TAXOTERE CISPLATIN 5FU
     Route: 041
     Dates: start: 20200213, end: 20200731
  7. METOCLOPRAMIDE. [Concomitant]
     Active Substance: METOCLOPRAMIDE
     Indication: NAUSEA
     Dosage: 30 MILLIGRAM DAILY; IN CASE OF NAUSEA
     Route: 048
  8. KARDEGIC [Concomitant]
     Active Substance: ASPIRIN DL-LYSINE
     Indication: PRODUCT USED FOR UNKNOWN INDICATION
     Route: 048
  9. DIOSMECTITE [Concomitant]
     Active Substance: MONTMORILLONITE
     Indication: DIARRHOEA
     Dosage: 3 DOSAGE FORMS DAILY; 1 SACHET MORNING, NOON AND EVENING (UNTIL THE DIARRHEA STOPS)
     Route: 048
  10. INEGY 10 MG/40 MG, COMPRIME [Concomitant]
     Active Substance: EZETIMIBE\SIMVASTATIN
     Indication: PRODUCT USED FOR UNKNOWN INDICATION
     Dosage: 1 DOSAGE FORMS DAILY; IN THE EVENING
     Route: 048
  11. NOVOMIX [Concomitant]
     Active Substance: INSULIN ASPART
     Indication: PRODUCT USED FOR UNKNOWN INDICATION
     Dosage: 1 DOSAGE FORMS DAILY; 70 12 UI AT NOON
  12. NOVORAPID FLEXPEN 100 U/ML, SOLUTION INJECTABLE EN STYLO PREREMPLI [Concomitant]
     Indication: DIABETES MELLITUS
     Dosage: 21 IU (INTERNATIONAL UNIT) DAILY; 7 IU IN THE MORNING, 7 IU AT NOON AND 7 IU IN THE EVENING WITH DOS
     Route: 036
  13. SKENAN [Concomitant]
     Active Substance: MORPHINE SULFATE
     Indication: PRODUCT USED FOR UNKNOWN INDICATION
     Dosage: 60MG MORNING AND EVENING EVERY DAY, 120 MICROGRAM
     Route: 048
  14. RACECADOTRIL [Concomitant]
     Active Substance: RACECADOTRIL
     Indication: DIARRHOEA
     Dosage: 100 MG: 1 AFTER EACH DIARRHEAL STOOL, MAXIMUM 4 PER DAY
     Route: 048
  15. ACTISKENAN 20 MG, GELULE [Concomitant]
     Active Substance: MORPHINE SULFATE
     Indication: PAIN
     Dosage: FOR PAIN UPTO 6 TIMES A DAY, 1 DOSAGE FORM
     Route: 048
  16. FLUOROURACILE [Concomitant]
     Active Substance: FLUOROURACIL
     Indication: OESOPHAGEAL CARCINOMA RECURRENT
  17. VENTOLINE [Concomitant]
     Active Substance: ALBUTEROL
     Indication: PRODUCT USED FOR UNKNOWN INDICATION
     Route: 055
  18. CREON 12000 U, GRANULES GASTRO?RESISTANTS EN GELULE [Concomitant]
     Indication: PRODUCT USED FOR UNKNOWN INDICATION
     Dosage: 3 DOSAGE FORMS DAILY; MORNING, NOON AND EVENING
     Route: 048
  19. ATENOLOL ARROW 100 MG, COMPRIME PELLICUE SECABLE [Concomitant]
     Indication: PRODUCT USED FOR UNKNOWN INDICATION
     Route: 048
  20. NICOPASS [Concomitant]
     Active Substance: NICOTINE
     Indication: PRODUCT USED FOR UNKNOWN INDICATION
     Dosage: 1.5MG: UP TO 10 DURING THE DAY WITH A DELAY OF ONE HOUR BETWEEN 2 INTAKES
     Route: 048
  21. TAXOTERE [Concomitant]
     Active Substance: DOCETAXEL
     Indication: OESOPHAGEAL CARCINOMA RECURRENT
     Dosage: TCF PROTOCOL (TAXOTERE CISPLATIN 5FU)
     Dates: start: 20200213, end: 20200731
  22. LOPERAMIDE BASE [Concomitant]
     Active Substance: LOPERAMIDE
     Indication: DIARRHOEA
     Dosage: 2 CAPSULES AFTER THE FIRST DIARRHEAL STOOL THEN 1 CAPSULE AFTER
     Route: 048
  23. ABASAGLAR [Concomitant]
     Active Substance: INSULIN GLARGINE
     Indication: DIABETES MELLITUS
  24. PAROXETINE ARROW 20 MG, COMPRIME PELLICULE SECABLE [Concomitant]
     Active Substance: PAROXETINE HYDROCHLORIDE
     Indication: PRODUCT USED FOR UNKNOWN INDICATION
     Dosage: 1 DOSAGE FORMS DAILY; IN THE MORNING
     Route: 048
  25. VITAMINE A [Concomitant]
     Active Substance: RETINOL
     Indication: PRODUCT USED FOR UNKNOWN INDICATION
     Dosage: 2 DOSAGE FORMS DAILY; 2500IU / 10G: 1 APPLICATION BY THE OPHTHALMIC ROUTE
     Route: 047
  26. MOVICOL [Concomitant]
     Active Substance: POLYETHYLENE GLYCOL 3350\POTASSIUM CHLORIDE\SODIUM BICARBONATE\SODIUM CHLORIDE
     Indication: CONSTIPATION
     Dosage: 2 DOSAGE FORMS DAILY; 1 SACHET MORNING AND NOON IF CONSTIPATION
     Route: 048
  27. PERINDOPRIL ARGININE [Concomitant]
     Active Substance: PERINDOPRIL ARGININE
     Indication: PRODUCT USED FOR UNKNOWN INDICATION
     Dosage: 8 MILLIGRAM DAILY; CPR, 1 IN THE MORNING
     Route: 048

REACTIONS (1)
  - Anaphylactoid shock [Recovered/Resolved]

NARRATIVE: CASE EVENT DATE: 20200731
